FAERS Safety Report 26095930 (Version 1)
Quarter: 2025Q4

REPORT INFORMATION
  Report Type: Spontaneous
  Country: JP (occurrence: JP)
  Receive Date: 20251127
  Receipt Date: 20251127
  Transmission Date: 20260117
  Serious: Yes (Other)
  Sender: BRISTOL-MYERS SQUIBB COMPANY
  Company Number: JP-BRISTOL-MYERS SQUIBB COMPANY-2025-158700

PATIENT
  Age: 84 Year
  Weight: 54 kg

DRUGS (4)
  1. ELIQUIS [Suspect]
     Active Substance: APIXABAN
     Indication: Atrial fibrillation
  2. ELIQUIS [Suspect]
     Active Substance: APIXABAN
     Dosage: STRENGTH: 5 MILLIGRAM
  3. TICLOPIDINE [Concomitant]
     Active Substance: TICLOPIDINE
     Indication: Thrombosis prophylaxis
  4. IFENPRODIL [Concomitant]
     Active Substance: IFENPRODIL
     Indication: Thrombosis prophylaxis

REACTIONS (2)
  - Haemorrhage [Unknown]
  - Arrhythmia [Recovering/Resolving]
